FAERS Safety Report 9386210 (Version 2)
Quarter: 2013Q3

REPORT INFORMATION
  Report Type: Spontaneous
  Country: JP (occurrence: JP)
  Receive Date: 20130708
  Receipt Date: 20130805
  Transmission Date: 20140515
  Serious: Yes (Death)
  Sender: FDA-Public Use
  Company Number: JP-PFIZER INC-2013160006

PATIENT
  Age: 79 Year
  Sex: Male
  Weight: 64 kg

DRUGS (1)
  1. TORISEL [Suspect]
     Indication: METASTATIC RENAL CELL CARCINOMA
     Dosage: 15 MG, CYCLIC: WEEKLY, TWO-WEEK ADMINISTRATION FOLLOWED BY ONE-WEEK REST
     Route: 041
     Dates: start: 20120830, end: 20130502

REACTIONS (1)
  - Interstitial lung disease [Fatal]
